FAERS Safety Report 10930352 (Version 2)
Quarter: 2015Q2

REPORT INFORMATION
  Report Type: Report from Study
  Country: BR (occurrence: BR)
  Receive Date: 20150319
  Receipt Date: 20150618
  Transmission Date: 20150821
  Serious: Yes (Other)
  Sender: FDA-Public Use
  Company Number: BR-ABBVIE-15K-020-1361106-00

PATIENT
  Sex: Female
  Weight: 52 kg

DRUGS (5)
  1. HUMIRA [Suspect]
     Active Substance: ADALIMUMAB
     Indication: RHEUMATOID ARTHRITIS
     Route: 058
     Dates: end: 201410
  2. VIMOVO [Concomitant]
     Active Substance: ESOMEPRAZOLE MAGNESIUM\NAPROXEN
     Indication: PAIN
     Route: 048
     Dates: start: 20150211
  3. ECASIL [Concomitant]
     Indication: BLOOD PRESSURE ABNORMAL
     Dates: start: 2013
  4. ACITRETIN. [Concomitant]
     Active Substance: ACITRETIN
     Indication: DEPRESSION
     Route: 048
     Dates: start: 2011
  5. COVERSYL PLUS [Concomitant]
     Active Substance: INDAPAMIDE\PERINDOPRIL
     Indication: BLOOD PRESSURE ABNORMAL
     Route: 048
     Dates: start: 2012

REACTIONS (3)
  - Gingival disorder [Unknown]
  - Jaw fracture [Unknown]
  - Device breakage [Unknown]
